FAERS Safety Report 8625034-2 (Version None)
Quarter: 2012Q3

REPORT INFORMATION
  Report Type: 
  Country: None (occurrence: None)
  Receive Date: 20120827
  Receipt Date: 20120823
  Transmission Date: 20120928
  Serious: Yes (Life-Threatening, Hospitalization)
  Sender: FDA-Public Use
  Company Number: US-B.I. PHARMACEUTICALS,INC./RIDGEFIELD-2012-BP-16667BP

PATIENT
  Sex: Female
  Weight: 44.91 kg

DRUGS (6)
  1. DIGOXIN [Concomitant]
     Dosage: 0.125 NR
  2. ZOLOFT [Concomitant]
     Indication: DEPRESSION
     Dosage: 50 NR
  3. PRADAXA [Suspect]
     Indication: ATRIAL FIBRILLATION
     Dosage: 300 MG
     Route: 048
     Dates: start: 20110215, end: 20120107
  4. LIPITOR [Concomitant]
     Indication: BLOOD CHOLESTEROL
     Dosage: 10 NR
  5. DYAZIDE [Concomitant]
  6. BYSTOLIC [Concomitant]
     Indication: BLOOD PRESSURE
     Dosage: 5 NR

REACTIONS (5)
  - FALL [None]
  - SPINAL FRACTURE [None]
  - HAEMOPTYSIS [None]
  - PULMONARY INFARCTION [None]
  - PULMONARY EMBOLISM [None]
